FAERS Safety Report 7837951 (Version 6)
Quarter: 2013Q1

REPORT INFORMATION
  Report Type: Spontaneous
  Country: US (occurrence: US)
  Receive Date: 20110302
  Receipt Date: 20130222
  Transmission Date: 20140127
  Serious: Yes (Hospitalization, Disabling, Other)
  Sender: FDA-Public Use
  Company Number: US-ASTRAZENECA-2010SE55771

PATIENT
  Age: 64 Year
  Sex: Female
  Weight: 73.5 kg

DRUGS (18)
  1. NEXIUM [Suspect]
     Indication: GASTROOESOPHAGEAL REFLUX DISEASE
     Route: 048
     Dates: end: 20040728
  2. NEXIUM [Suspect]
     Indication: GASTRIC ULCER
     Route: 048
     Dates: end: 20040728
  3. NEXIUM [Suspect]
     Indication: OESOPHAGEAL ULCER
     Route: 048
     Dates: end: 20040728
  4. NEXIUM [Suspect]
     Indication: GASTROOESOPHAGEAL REFLUX DISEASE
     Route: 048
     Dates: start: 20040729
  5. NEXIUM [Suspect]
     Indication: GASTRIC ULCER
     Route: 048
     Dates: start: 20040729
  6. NEXIUM [Suspect]
     Indication: OESOPHAGEAL ULCER
     Route: 048
     Dates: start: 20040729
  7. NEXIUM [Suspect]
     Indication: GASTROOESOPHAGEAL REFLUX DISEASE
     Route: 048
  8. NEXIUM [Suspect]
     Indication: GASTRIC ULCER
     Route: 048
  9. NEXIUM [Suspect]
     Indication: OESOPHAGEAL ULCER
     Route: 048
  10. CRESTOR [Suspect]
     Route: 048
  11. ASPIRIN [Suspect]
     Route: 065
  12. UNSPECIFIED ANTIBIOTIC [Suspect]
     Route: 065
  13. TOPROL [Concomitant]
     Route: 048
  14. TUMS [Concomitant]
  15. PEPTO BISMOL [Concomitant]
  16. ASACOL [Concomitant]
  17. SINGULAIR [Concomitant]
  18. BEXTRA [Concomitant]

REACTIONS (14)
  - Depressed level of consciousness [Unknown]
  - Abdominal hernia [Unknown]
  - Incisional hernia [Unknown]
  - Blindness [Unknown]
  - Gastrooesophageal reflux disease [Unknown]
  - Drug hypersensitivity [Unknown]
  - Asthma [Unknown]
  - Procedural pain [Unknown]
  - Stomatitis [Unknown]
  - Diabetes mellitus [Unknown]
  - Abdominal pain upper [Unknown]
  - Rash [Unknown]
  - Drug hypersensitivity [Unknown]
  - Drug dose omission [Unknown]
